FAERS Safety Report 8832054 (Version 1)
Quarter: 2012Q4

REPORT INFORMATION
  Report Type: Report from Study
  Country: DE (occurrence: DE)
  Receive Date: 20121009
  Receipt Date: 20121009
  Transmission Date: 20130627
  Serious: Yes (Other)
  Sender: FDA-Public Use
  Company Number: DE-ROCHE-1021480

PATIENT
  Age: 72 Year
  Sex: Female
  Weight: 63 kg

DRUGS (5)
  1. TOCILIZUMAB [Suspect]
     Indication: RHEUMATOID ARTHRITIS
     Dosage: date of last dose prior to SAE:25/Nov/2011
     Route: 042
     Dates: start: 20110114, end: 20111125
  2. PANTOPRAZOL [Concomitant]
     Dosage: date of last dose prior to SAE:25/Nov/2011
     Route: 048
     Dates: start: 20100101
  3. DECORTIN H [Concomitant]
     Indication: RHEUMATOID ARTHRITIS
     Dosage: date of last dose prior to SAE:25/Nov/2011
     Route: 048
     Dates: start: 201008
  4. BLOPRESS PLUS [Concomitant]
     Dosage: 8 mg/12.5 mg, last dose prior to SAE: 02/Nov/2011
     Route: 048
     Dates: start: 201009
  5. AMITRIPTYLINE [Concomitant]
     Dosage: date of last dose prior to SAE:25/Nov/2011
     Route: 065
     Dates: start: 201101

REACTIONS (2)
  - Spondylitis [Not Recovered/Not Resolved]
  - Osteitis [Recovered/Resolved]
